FAERS Safety Report 4304507-7 (Version None)
Quarter: 2004Q1

REPORT INFORMATION
  Report Type: 
  Country: None (occurrence: None)
  Receive Date: 20040224
  Receipt Date: 20040212
  Transmission Date: 20041129
  Serious: Yes (Life-Threatening, Hospitalization, Disabling)
  Sender: FDA-Public Use
  Company Number: 2004193931GB

PATIENT
  Age: 84 Year
  Sex: Female

DRUGS (5)
  1. BEXTRA [Suspect]
     Indication: PAIN
     Dosage: 10 MG, QD, ORAL
     Route: 048
  2. THYROXIN (LEVOTHYROXINE SODIUM) [Concomitant]
  3. FRUSEMIDE [Concomitant]
  4. TRAMADOL [Concomitant]
  5. FLUCLOXACILLIN [Concomitant]

REACTIONS (4)
  - ANGIOPATHY [None]
  - DIALYSIS [None]
  - RENAL FAILURE [None]
  - VASCULITIC RASH [None]
